FAERS Safety Report 21342188 (Version 2)
Quarter: 2022Q4

REPORT INFORMATION
  Report Type: Report from Study
  Country: CO (occurrence: CO)
  Receive Date: 20220916
  Receipt Date: 20221025
  Transmission Date: 20230112
  Serious: Yes (Other)
  Sender: FDA-Public Use
  Company Number: CO-BAYER-2022A048566

PATIENT
  Sex: Male

DRUGS (6)
  1. EYLEA [Suspect]
     Active Substance: AFLIBERCEPT
     Indication: Age-related macular degeneration
     Dosage: 2MG, MONTHLY, 1ST INJECTION OS, SOLUTION FOR INJECTION, STRENGTH: 40 MG/ML
     Route: 031
     Dates: start: 20211210, end: 20211210
  2. EYLEA [Suspect]
     Active Substance: AFLIBERCEPT
     Dosage: 2MG, MONTHLY, 2ND INJECTION OS, SOLUTION FOR INJECTION, STRENGTH: 40 MG/ML
     Dates: start: 20220122, end: 20220122
  3. EYLEA [Suspect]
     Active Substance: AFLIBERCEPT
     Dosage: 3RD INJECTION LEFT EYE, SOLUTION FOR INJECTION, STRENGTH: 40 MG/ML
     Route: 031
     Dates: start: 20220606, end: 20220606
  4. EYLEA [Suspect]
     Active Substance: AFLIBERCEPT
     Dosage: 4TH INJECTION, LEFT EYE, SOLUTION FOR INJECTION, STRENGTH: 40 MG/ML
     Route: 031
     Dates: start: 20220816, end: 20220816
  5. EYLEA [Suspect]
     Active Substance: AFLIBERCEPT
     Dosage: 5TH INJECTION,LEFT EYE, 2 MG INTRAVITREALLY MONTHLY FOR 3 MONTHS, THEN EVERY 2 MONTHS, SOL. FOR INJ.
     Route: 031
     Dates: start: 20220915, end: 20220915
  6. EYLEA [Suspect]
     Active Substance: AFLIBERCEPT
     Dosage: LEFT EYE, SOLUTION FOR INJCTION, STRENGTH: 40 MG/ML
     Route: 031
     Dates: start: 20221012, end: 20221012

REACTIONS (8)
  - Blindness transient [Recovered/Resolved]
  - Blindness unilateral [Not Recovered/Not Resolved]
  - Inappropriate schedule of product administration [Not Recovered/Not Resolved]
  - Product dose omission issue [Unknown]
  - Product supply issue [Unknown]
  - Drug ineffective [Unknown]
  - Headache [Unknown]
  - Ocular discomfort [Not Recovered/Not Resolved]

NARRATIVE: CASE EVENT DATE: 20211210
